FAERS Safety Report 6963069-6 (Version None)
Quarter: 2010Q3

REPORT INFORMATION
  Report Type: 
  Country: None (occurrence: None)
  Receive Date: 20100902
  Receipt Date: 20100830
  Transmission Date: 20110219
  Serious: Yes (Life-Threatening, Hospitalization)
  Sender: FDA-Public Use
  Company Number: JP-ELI_LILLY_AND_COMPANY-JP201008008611

PATIENT
  Sex: Male

DRUGS (5)
  1. ALIMTA [Suspect]
     Indication: NON-SMALL CELL LUNG CANCER
     Dosage: 500 MG/M2, EVERY 3 WEEKS
     Route: 042
     Dates: start: 20100701
  2. CARBOPLATIN [Concomitant]
     Indication: NON-SMALL CELL LUNG CANCER
     Dosage: 5 D/F, EVERY 3 WEEKS
     Route: 042
     Dates: start: 20100701
  3. BEVACIZUMAB [Concomitant]
     Indication: NON-SMALL CELL LUNG CANCER
     Dosage: 15 MG/KG, EVERY 3 WEEKS
     Route: 042
     Dates: start: 20100701
  4. FOLIC ACID [Concomitant]
     Dosage: UNK, UNKNOWN
     Route: 065
  5. VITAMIN B-12 [Concomitant]
     Dosage: UNK, UNKNOWN
     Route: 065

REACTIONS (1)
  - HAEMOPTYSIS [None]
